FAERS Safety Report 4338386-9 (Version None)
Quarter: 2004Q2

REPORT INFORMATION
  Report Type: 
  Country: None (occurrence: None)
  Receive Date: 20040409
  Receipt Date: 20040401
  Transmission Date: 20050107
  Serious: No
  Sender: FDA-Public Use
  Company Number: 2004UW04395

PATIENT
  Age: 37 Year
  Sex: Male

DRUGS (4)
  1. SEROQUEL [Suspect]
     Indication: DELUSIONAL DISORDER, UNSPECIFIED TYPE
     Dosage: 900 MG DAILY PO
     Route: 048
  2. FLUOXETINE [Concomitant]
  3. HALDOL [Concomitant]
  4. GLYBURIDE [Concomitant]

REACTIONS (1)
  - CATARACT [None]
